FAERS Safety Report 6638108-2 (Version None)
Quarter: 2010Q1

REPORT INFORMATION
  Report Type: 
  Country: None (occurrence: None)
  Receive Date: 20100317
  Receipt Date: 20100216
  Transmission Date: 20100710
  Serious: No
  Sender: FDA-Public Use
  Company Number: US-BAYER-201012072BCC

PATIENT
  Sex: Male

DRUGS (3)
  1. ALEVE (CAPLET) [Suspect]
     Indication: BACK PAIN
     Route: 048
  2. ALEVE (CAPLET) [Suspect]
     Route: 048
  3. WELLBUTRIN [Concomitant]
     Dosage: TOTAL DAILY DOSE: 220 MG  UNIT DOSE: 100 MG
     Route: 065

REACTIONS (1)
  - DYSPEPSIA [None]
